FAERS Safety Report 7569235-3 (Version None)
Quarter: 2011Q2

REPORT INFORMATION
  Report Type: 
  Country: None (occurrence: None)
  Receive Date: 20110623
  Receipt Date: 20110614
  Transmission Date: 20111010
  Serious: Yes (Other)
  Sender: FDA-Public Use
  Company Number: US-ASTRAZENECA-2011SE32328

PATIENT
  Age: 62 Year
  Sex: Female
  Weight: 52.6 kg

DRUGS (1)
  1. SYMBICORT [Suspect]
     Indication: WHEEZING
     Dosage: 320MCG BID
     Route: 055

REACTIONS (4)
  - PRESYNCOPE [None]
  - TREMOR [None]
  - PARAESTHESIA [None]
  - LUNG NEOPLASM MALIGNANT [None]
